FAERS Safety Report 23465816 (Version 1)
Quarter: 2024Q1

REPORT INFORMATION
  Report Type: Spontaneous
  Country: US (occurrence: None)
  Receive Date: 20240131
  Receipt Date: 20240131
  Transmission Date: 20240410
  Serious: Yes (Death)
  Sender: FDA-Public Use
  Company Number: None

PATIENT
  Age: 65 Year
  Sex: Male
  Weight: 116 kg

DRUGS (2)
  1. VANCOMYCIN [Suspect]
     Active Substance: VANCOMYCIN
     Indication: Sepsis
     Dosage: OTHER FREQUENCY : ONCE;?
     Route: 042
     Dates: start: 20240125, end: 20240126
  2. VANCOMYCIN [Suspect]
     Active Substance: VANCOMYCIN
     Indication: Peritonitis

REACTIONS (7)
  - Cardio-respiratory arrest [None]
  - Ventricular fibrillation [None]
  - Pulseless electrical activity [None]
  - Peritoneal dialysis [None]
  - Anticoagulation drug level below therapeutic [None]
  - Pulmonary embolism [None]
  - Infusion related reaction [None]

NARRATIVE: CASE EVENT DATE: 20240126
